FAERS Safety Report 21991005 (Version 1)
Quarter: 2023Q1

REPORT INFORMATION
  Report Type: Spontaneous
  Country: US (occurrence: US)
  Receive Date: 20230214
  Receipt Date: 20230214
  Transmission Date: 20230417
  Serious: No
  Sender: FDA-Public Use
  Company Number: US-SA-SAC20230213000102

PATIENT
  Age: 44 Year
  Sex: Female

DRUGS (4)
  1. DUPIXENT [Suspect]
     Active Substance: DUPILUMAB
     Indication: Eczema
     Dosage: 300 MG, QOW
     Route: 058
     Dates: start: 20200611
  2. NYSTATIN [Concomitant]
     Active Substance: NYSTATIN
  3. DESONIDE [Concomitant]
     Active Substance: DESONIDE
  4. DAPSONE [Concomitant]
     Active Substance: DAPSONE

REACTIONS (1)
  - Intentional product misuse [Unknown]
